FAERS Safety Report 23180790 (Version 2)
Quarter: 2023Q4

REPORT INFORMATION
  Report Type: Report from Study
  Country: US (occurrence: US)
  Receive Date: 20231114
  Receipt Date: 20231124
  Transmission Date: 20240110
  Serious: No
  Sender: FDA-Public Use
  Company Number: US-AstraZeneca-CH-00502064A

PATIENT
  Sex: Female

DRUGS (1)
  1. ULTOMIRIS [Suspect]
     Active Substance: RAVULIZUMAB-CWVZ
     Indication: Myasthenia gravis
     Dosage: UNK
     Route: 065
     Dates: start: 20230213

REACTIONS (10)
  - Hypoglycaemia [Not Recovered/Not Resolved]
  - Memory impairment [Unknown]
  - Depression [Not Recovered/Not Resolved]
  - Asthenia [Unknown]
  - Migraine [Not Recovered/Not Resolved]
  - Tongue disorder [Not Recovered/Not Resolved]
  - Depressed mood [Unknown]
  - Gait disturbance [Unknown]
  - Osteoporosis [Unknown]
  - Cerebral disorder [Unknown]
